FAERS Safety Report 24284304 (Version 1)
Quarter: 2024Q3

REPORT INFORMATION
  Report Type: Spontaneous
  Country: US (occurrence: None)
  Receive Date: 20240905
  Receipt Date: 20240905
  Transmission Date: 20241016
  Serious: No
  Sender: ASTRAZENECA
  Company Number: 2024A141655

PATIENT
  Age: 62 Year
  Weight: 60.4 kg

DRUGS (3)
  1. BREZTRI [Suspect]
     Active Substance: BUDESONIDE\FORMOTEROL\GLYCOPYRROLATE
     Indication: Asthma
     Dosage: 160 MCG/9 MCG/4.8 MCG UNKNOWN
     Route: 055
     Dates: start: 20240512, end: 20240526
  2. BREZTRI [Suspect]
     Active Substance: BUDESONIDE\FORMOTEROL\GLYCOPYRROLATE
     Indication: Asthma
     Dosage: 160 MCG/9 MCG/4.8 MCG UNKNOWN
     Route: 055
     Dates: start: 20240527
  3. TRELEGY ELLIPTA [Suspect]
     Active Substance: FLUTICASONE FUROATE\UMECLIDINIUM BROMIDE\VILANTEROL TRIFENATATE
     Dosage: 100/62.5/25 MCG, ONE PUFF DAILY

REACTIONS (9)
  - Dyspnoea [Unknown]
  - Dysphonia [Not Recovered/Not Resolved]
  - Chest discomfort [Unknown]
  - Device use issue [Unknown]
  - Incorrect dose administered by device [Unknown]
  - Wrong technique in device usage process [Unknown]
  - Product use issue [Unknown]
  - Device delivery system issue [Unknown]
  - Device malfunction [Unknown]

NARRATIVE: CASE EVENT DATE: 20240101
